FAERS Safety Report 17992536 (Version 1)
Quarter: 2020Q3

REPORT INFORMATION
  Report Type: Spontaneous
  Country: ES (occurrence: ES)
  Receive Date: 20200707
  Receipt Date: 20200707
  Transmission Date: 20201103
  Serious: Yes (Hospitalization)
  Sender: FDA-Public Use
  Company Number: NVSC2020ES186956

PATIENT
  Age: 61 Year
  Sex: Female

DRUGS (2)
  1. TRAMETINIB [Suspect]
     Active Substance: TRAMETINIB
     Indication: PRODUCT USED FOR UNKNOWN INDICATION
     Dosage: 2 MG, QMO (2 MG/ DIA CADA 30 D?AS)
     Route: 048
     Dates: start: 20190324, end: 20200124
  2. DABRAFENIB [Suspect]
     Active Substance: DABRAFENIB
     Indication: PRODUCT USED FOR UNKNOWN INDICATION
     Dosage: 300 MG, QMO (300 MG/DIA CADA 30 DIAS)
     Route: 048
     Dates: start: 20190324, end: 20200124

REACTIONS (1)
  - Ocular toxicity [Recovered/Resolved]

NARRATIVE: CASE EVENT DATE: 20200125
